FAERS Safety Report 11119023 (Version 1)
Quarter: 2015Q2

REPORT INFORMATION
  Report Type: Spontaneous
  Country: US (occurrence: None)
  Receive Date: 20150515
  Receipt Date: 20150515
  Transmission Date: 20150821
  Serious: Yes (Other)
  Sender: FDA-Public Use
  Company Number: None

PATIENT
  Age: 19 Year
  Sex: Female
  Weight: 113.4 kg

DRUGS (4)
  1. MELITONON [Concomitant]
  2. MELITON [Concomitant]
  3. IRON [Concomitant]
     Active Substance: IRON
  4. NEXPLANON [Suspect]
     Active Substance: ETONOGESTREL
     Dates: start: 20130219

REACTIONS (3)
  - Embedded device [None]
  - Menorrhagia [None]
  - Device deployment issue [None]

NARRATIVE: CASE EVENT DATE: 20150506
